FAERS Safety Report 6024695-4 (Version None)
Quarter: 2008Q4

REPORT INFORMATION
  Report Type: 
  Country: None (occurrence: None)
  Receive Date: 20081230
  Receipt Date: 20081230
  Transmission Date: 20090506
  Serious: Yes (Other)
  Sender: FDA-Public Use
  Company Number: None

PATIENT
  Age: 41 Year
  Sex: Male
  Weight: 92.9874 kg

DRUGS (1)
  1. CYCLOBENZAPRINE [Suspect]
     Indication: MUSCLE STRAIN
     Dosage: 10 1 A DAY OTHER
     Route: 050
     Dates: start: 20081217, end: 20081226

REACTIONS (3)
  - BALANCE DISORDER [None]
  - DIZZINESS POSTURAL [None]
  - VERTIGO POSITIONAL [None]
